FAERS Safety Report 9297974 (Version 1)
Quarter: 2013Q2

REPORT INFORMATION
  Report Type: Spontaneous
  Country: ZA (occurrence: ZA)
  Receive Date: 20130520
  Receipt Date: 20130520
  Transmission Date: 20140414
  Serious: Yes (Other)
  Sender: FDA-Public Use
  Company Number: ZA-PFIZER INC-2013150470

PATIENT
  Age: 43 Year
  Sex: Female

DRUGS (2)
  1. RAPAMUNE [Suspect]
     Indication: CORNEAL TRANSPLANT
     Dosage: 2 MG, 1X/DAY
     Route: 048
     Dates: start: 20130408, end: 20130503
  2. CORTISONE [Concomitant]

REACTIONS (6)
  - Off label use [Not Recovered/Not Resolved]
  - Meningism [Recovered/Resolved]
  - Spinal pain [Recovered/Resolved]
  - Photosensitivity reaction [Recovered/Resolved]
  - Headache [Recovered/Resolved]
  - Pyrexia [Recovered/Resolved]
